FAERS Safety Report 8237716 (Version 4)
Quarter: 2013Q3

REPORT INFORMATION
  Report Type: Spontaneous
  Country: US (occurrence: US)
  Receive Date: 20111109
  Receipt Date: 20130916
  Transmission Date: 20140515
  Serious: Yes (Hospitalization, Congenital Anomaly, Other)
  Sender: FDA-Public Use
  Company Number: US-PFIZER INC-2011270383

PATIENT
  Sex: Female

DRUGS (24)
  1. ZOLOFT [Suspect]
     Indication: FATIGUE
     Dosage: 50 MG, 1X/DAY, EVERY NIGHT
     Route: 064
     Dates: start: 19980224, end: 19980324
  2. ZOLOFT [Suspect]
     Indication: DEPRESSION
     Dosage: 50 MG, 1X/DAY
     Route: 064
     Dates: start: 20050510, end: 20050522
  3. ZOLOFT [Suspect]
     Indication: ANXIETY
     Dosage: 100 MG, 1X/DAY
     Route: 064
     Dates: start: 20050523, end: 20050530
  4. ZOLOFT [Suspect]
     Dosage: 50 MG, 1X/DAY AT BED TIME
     Route: 064
     Dates: start: 20050531, end: 20050615
  5. ZOLOFT [Suspect]
     Dosage: 100 MG, DAILY
     Route: 064
     Dates: start: 20050616
  6. ZOLOFT [Suspect]
     Dosage: 150 MG, 1X/DAY (100MG TABLET, ONE AND HALF TABLET ONCE DAILY)
     Route: 064
     Dates: start: 20050711, end: 20060430
  7. ZOLOFT [Suspect]
     Dosage: 200 MG, 1X/DAY
     Route: 064
     Dates: start: 20060501
  8. ZOLOFT [Suspect]
     Dosage: 50 MG, 1X/DAY EVERY MORNING
     Route: 064
     Dates: start: 20080814
  9. ZOLOFT [Suspect]
     Dosage: UNK
     Route: 064
     Dates: start: 2008
  10. XANAX [Concomitant]
     Indication: ANXIETY
     Dosage: 0.5 MG, DAILY AS NEEDED
     Route: 064
     Dates: start: 20070227
  11. XANAX [Concomitant]
     Indication: DEPRESSION
  12. ETHINYLESTRADIOL/NORGESTIMATE [Concomitant]
     Dosage: UNK
     Route: 064
     Dates: start: 20080530, end: 20090323
  13. PAXIL [Concomitant]
     Indication: ANXIETY
     Dosage: 40 MG, 1X/DAY
     Route: 064
     Dates: start: 20080814
  14. PAXIL [Concomitant]
     Indication: DEPRESSION
  15. ZITHROMAX [Concomitant]
     Indication: COUGH
     Dosage: 500 MG, 1X/DAY
     Route: 064
     Dates: start: 20081222, end: 20081222
  16. ZITHROMAX [Concomitant]
     Dosage: 250 MG, 1X/DAY
     Route: 064
     Dates: start: 20081223
  17. CEFTIN [Concomitant]
     Indication: ACUTE SINUSITIS
     Dosage: 500 MG, 2X/DAY
     Route: 064
     Dates: start: 20090302, end: 20090323
  18. RHINOCORT AQUA [Concomitant]
     Indication: ACUTE SINUSITIS
     Dosage: 64 UG, 1X/DAY, EACH NOSTRIL
     Route: 064
     Dates: start: 20090302
  19. PHENERGAN WITH CODEINE [Concomitant]
     Indication: COUGH
     Dosage: 5 ML, 4X/DAY (EVERY 6 HOURS AS NEEDED)
     Route: 064
     Dates: start: 20090309
  20. OMNICEF [Concomitant]
     Indication: COUGH
     Dosage: 300 MG, 2X/DAY
     Route: 064
     Dates: start: 20090323
  21. GUAIFENESIN [Concomitant]
     Indication: COUGH
     Dosage: UNK
     Route: 064
  22. GUAIFENESIN W/DEXTROMETHORPHAN [Concomitant]
     Indication: COUGH
     Dosage: UNK
     Route: 064
  23. VICKS COUGH DROPS [Concomitant]
     Indication: COUGH
     Dosage: UNK
     Route: 064
  24. IBUPROFEN [Concomitant]
     Dosage: UNK
     Route: 064

REACTIONS (5)
  - Maternal exposure during pregnancy [Unknown]
  - Fallot^s tetralogy [Unknown]
  - Heart disease congenital [Unknown]
  - Ventricular septal defect [Unknown]
  - Right aortic arch [Unknown]
